FAERS Safety Report 8553242-8 (Version None)
Quarter: 2012Q3

REPORT INFORMATION
  Report Type: 
  Country: None (occurrence: None)
  Receive Date: 20120731
  Receipt Date: 20120723
  Transmission Date: 20120928
  Serious: Yes (Death)
  Sender: FDA-Public Use
  Company Number: JP-ASTRAZENECA-2012SE53328

PATIENT
  Age: 43 Year
  Sex: Female

DRUGS (2)
  1. OTHER ANTIPSYCHOTIC DRUGS [Concomitant]
  2. SEROQUEL [Suspect]
     Route: 048
     Dates: start: 20120301, end: 20120301

REACTIONS (3)
  - TOXICITY TO VARIOUS AGENTS [None]
  - MULTIPLE DRUG OVERDOSE INTENTIONAL [None]
  - COMPLETED SUICIDE [None]
